FAERS Safety Report 25816803 (Version 1)
Quarter: 2025Q3

REPORT INFORMATION
  Report Type: Spontaneous
  Country: US (occurrence: US)
  Receive Date: 20250918
  Receipt Date: 20250918
  Transmission Date: 20251021
  Serious: No
  Sender: ABBVIE
  Company Number: US-ABBVIE-6454594

PATIENT
  Age: 63 Year
  Sex: Female
  Weight: 120.2 kg

DRUGS (12)
  1. CARIPRAZINE [Suspect]
     Active Substance: CARIPRAZINE
     Indication: Product used for unknown indication
     Route: 048
     Dates: start: 20250903
  2. CARIPRAZINE [Suspect]
     Active Substance: CARIPRAZINE
     Indication: Product used for unknown indication
     Route: 048
     Dates: start: 20250321, end: 20250903
  3. SEROQUEL [Concomitant]
     Active Substance: QUETIAPINE FUMARATE
     Indication: Bipolar I disorder
     Route: 048
     Dates: start: 20191128
  4. LOWSEC [Concomitant]
     Indication: Gastrooesophageal reflux disease
     Route: 048
     Dates: start: 1995
  5. SUCRALFATE [Concomitant]
     Active Substance: SUCRALFATE
     Indication: Gastrooesophageal reflux disease
     Route: 048
     Dates: start: 2018
  6. VITAMIN D [Concomitant]
     Active Substance: VITAMIN D NOS
     Indication: Vitamin D deficiency
     Route: 048
     Dates: start: 2004
  7. SYNTHROID [Concomitant]
     Active Substance: LEVOTHYROXINE SODIUM
     Indication: Hypothyroidism
     Route: 048
     Dates: start: 20230424
  8. POLYETHYLENE GLYCOL 3350 [Concomitant]
     Active Substance: POLYETHYLENE GLYCOL 3350
     Indication: Constipation
     Dosage: 17ML+17 PRN
     Route: 048
  9. LAMICTAL [Concomitant]
     Active Substance: LAMOTRIGINE
     Indication: Bipolar I disorder
     Route: 048
     Dates: start: 2010
  10. RISPERIDONE [Concomitant]
     Active Substance: RISPERIDONE
     Indication: Bipolar I disorder
     Route: 048
     Dates: start: 20190711
  11. VAGIFEM [Concomitant]
     Active Substance: ESTRADIOL
     Indication: Vulvovaginal dryness
     Route: 067
     Dates: start: 202501
  12. CLONAZEPAM [Concomitant]
     Active Substance: CLONAZEPAM
     Indication: Anxiety
     Dosage: 1+1MG PRN
     Route: 048
     Dates: start: 20211211

REACTIONS (3)
  - Depression [Not Recovered/Not Resolved]
  - Hypomania [Not Recovered/Not Resolved]
  - Seasonal affective disorder [Not Recovered/Not Resolved]

NARRATIVE: CASE EVENT DATE: 20250801
